FAERS Safety Report 6399407-5 (Version None)
Quarter: 2009Q4

REPORT INFORMATION
  Report Type: 
  Country: None (occurrence: None)
  Receive Date: 20091014
  Receipt Date: 20091002
  Transmission Date: 20100525
  Serious: Yes (Disabling)
  Sender: FDA-Public Use
  Company Number: DK-AMGEN-US358755

PATIENT
  Sex: Female

DRUGS (2)
  1. ENBREL [Suspect]
     Indication: PSORIASIS
     Dosage: UNKNOWN
     Dates: start: 20051010, end: 20060828
  2. ENBREL [Suspect]
     Dosage: UNKNOWN
     Dates: start: 20090108, end: 20090331

REACTIONS (2)
  - DIZZINESS [None]
  - VERTIGO [None]
